FAERS Safety Report 8840013 (Version 3)
Quarter: 2013Q1

REPORT INFORMATION
  Report Type: Report from Study
  Country: JP (occurrence: JP)
  Receive Date: 20121015
  Receipt Date: 20130102
  Transmission Date: 20140127
  Serious: Yes (Death, Hospitalization)
  Sender: FDA-Public Use
  Company Number: JP-NAPPMUNDI-GBR-2012-0011630

PATIENT
  Age: 76 Year
  Sex: Male

DRUGS (13)
  1. OXYCODONE HCL PR TABLET 20 MG [Suspect]
     Indication: CANCER PAIN
     Dosage: 40 MG, DAILY
     Route: 048
     Dates: start: 20101130, end: 20101207
  2. OXYCODONE HCL IR POWDER 0.5% [Suspect]
     Indication: CANCER PAIN
     Dosage: 5 MG, DAILY
     Route: 048
     Dates: start: 20101126, end: 20101208
  3. TRAMAL [Concomitant]
     Indication: CANCER PAIN
     Dosage: 100 MG, DAILY
     Route: 065
     Dates: start: 20101208, end: 20101208
  4. DIART [Concomitant]
     Indication: METASTASES TO LIVER
     Dosage: UNK
     Route: 048
     Dates: start: 20101202, end: 20101209
  5. DIART [Concomitant]
     Indication: GASTRIC CANCER
  6. TAKEPRON [Concomitant]
     Indication: PROPHYLAXIS
     Dosage: UNK
     Route: 048
     Dates: start: 20101202, end: 20101209
  7. PREDNISOLONE [Concomitant]
     Indication: CANCER PAIN
     Dosage: UNK
     Route: 048
     Dates: start: 20101202, end: 20101209
  8. HALCION [Concomitant]
     Dosage: UNK
     Route: 048
     Dates: start: 20101202, end: 20101209
  9. MORPHINE HYDROCHLORIDE [Concomitant]
     Indication: CANCER PAIN
     Dosage: 20 MG, DAILY
     Route: 048
     Dates: start: 20101208, end: 20101216
  10. KETALAR [Concomitant]
     Indication: CANCER PAIN
     Dosage: 0.5 MG, DAILY
     Route: 065
     Dates: start: 20101208, end: 20101216
  11. FENTANYL [Concomitant]
     Indication: CANCER PAIN
     Dosage: 0.2 MG, DAILY
     Route: 065
     Dates: start: 20101208, end: 20101216
  12. LASIX                              /00032601/ [Concomitant]
     Indication: GASTRIC CANCER
     Dosage: UNK
     Route: 065
     Dates: start: 20101209, end: 20101210
  13. LASIX                              /00032601/ [Concomitant]
     Indication: METASTASES TO LIVER

REACTIONS (2)
  - Delirium [Not Recovered/Not Resolved]
  - Hepatic neoplasm [Fatal]
